FAERS Safety Report 8565429-9 (Version None)
Quarter: 2012Q3

REPORT INFORMATION
  Report Type: 
  Country: None (occurrence: None)
  Receive Date: 20120803
  Receipt Date: 20120731
  Transmission Date: 20120928
  Serious: Yes (Other)
  Sender: FDA-Public Use
  Company Number: US-PFIZER INC-2012186951

PATIENT
  Sex: Female
  Weight: 110 kg

DRUGS (9)
  1. CALCIUM [Concomitant]
     Indication: ARTHROPATHY
  2. ATORVASTATIN CALCIUM [Suspect]
     Dosage: UNK
  3. LIPITOR [Suspect]
     Dosage: 40 MG, DAILY
  4. ZOLOFT [Suspect]
     Indication: DEPRESSION
     Dosage: 100 MG, DAILY
     Dates: start: 20080101
  5. LIPITOR [Suspect]
     Indication: BLOOD CHOLESTEROL INCREASED
     Dosage: 10 MG, DAILY
     Dates: start: 19920101
  6. ZOLOFT [Suspect]
     Dosage: 50 MG, 1X/DAY
     Dates: start: 20080101
  7. CALCIUM [Concomitant]
     Indication: PROPHYLAXIS
     Dosage: 1 PILL TWO TIMES A DAY
  8. GLUCOSAMINE [Concomitant]
     Indication: PROPHYLAXIS
     Dosage: 1 PILL TWO TIMES A DAY
  9. GLUCOSAMINE [Concomitant]
     Indication: ARTHROPATHY

REACTIONS (3)
  - VITAMIN D DECREASED [None]
  - DRUG INEFFECTIVE [None]
  - DIABETES MELLITUS [None]
